FAERS Safety Report 16395778 (Version 1)
Quarter: 2019Q2

REPORT INFORMATION
  Report Type: Spontaneous
  Country: JP (occurrence: JP)
  Receive Date: 20190605
  Receipt Date: 20190605
  Transmission Date: 20190711
  Serious: Yes (Hospitalization, Other)
  Sender: FDA-Public Use
  Company Number: JP-MYLANLABS-2019M1052986

PATIENT
  Age: 14 Year
  Sex: Female
  Weight: 46.7 kg

DRUGS (1)
  1. PREDNISOLONE. [Suspect]
     Active Substance: PREDNISOLONE
     Indication: PROTEIN-LOSING GASTROENTEROPATHY
     Route: 065

REACTIONS (2)
  - Drug ineffective [Unknown]
  - Gastritis haemorrhagic [Unknown]
